FAERS Safety Report 5345241-4 (Version None)
Quarter: 2007Q2

REPORT INFORMATION
  Report Type: 
  Country: None (occurrence: None)
  Receive Date: 20070605
  Receipt Date: 20070523
  Transmission Date: 20071010
  Serious: Yes (Other)
  Sender: FDA-Public Use
  Company Number: PHBS2007BR08671

PATIENT
  Age: 54 Year
  Sex: Female
  Weight: 86 kg

DRUGS (3)
  1. ESTRADOT [Suspect]
     Dosage: 2 PATCHES OF 50 MCG
     Route: 062
  2. ESTRADOT [Suspect]
     Dosage: 100 MCG
     Route: 062
  3. PAMELOR [Concomitant]
     Indication: DEPRESSION
     Dosage: 75 MG/D
     Route: 048

REACTIONS (3)
  - DIABETES MELLITUS [None]
  - HYPERHIDROSIS [None]
  - HYPERTENSION [None]
